FAERS Safety Report 20821014 (Version 1)
Quarter: 2022Q2

REPORT INFORMATION
  Report Type: Spontaneous
  Country: US (occurrence: None)
  Receive Date: 20220512
  Receipt Date: 20220512
  Transmission Date: 20220721
  Serious: Yes (Life-Threatening, Hospitalization)
  Sender: FDA-Public Use
  Company Number: None

PATIENT
  Age: 85 Year
  Sex: Female
  Weight: 54.1 kg

DRUGS (3)
  1. LEXISCAN [Suspect]
     Active Substance: REGADENOSON
     Indication: Cardiac stress test
     Dates: start: 20220510, end: 20220510
  2. CARDIOLITE [Concomitant]
     Active Substance: TECHNETIUM TC-99M SESTAMIBI
     Dates: start: 20220510, end: 20220510
  3. NS Flush [Concomitant]
     Dates: start: 20220510, end: 20220510

REACTIONS (8)
  - Dyspnoea [None]
  - Anxiety [None]
  - Feeling hot [None]
  - Unresponsive to stimuli [None]
  - Bradycardia [None]
  - Cardiac arrest [None]
  - Pulse absent [None]
  - Cardio-respiratory arrest [None]

NARRATIVE: CASE EVENT DATE: 20220510
